FAERS Safety Report 18249311 (Version 1)
Quarter: 2020Q3

REPORT INFORMATION
  Report Type: Spontaneous
  Country: US (occurrence: US)
  Receive Date: 20200909
  Receipt Date: 20200909
  Transmission Date: 20201103
  Serious: No
  Sender: FDA-Public Use
  Company Number: US-PERRIGO-20US012100

PATIENT
  Age: 85 Year
  Sex: Female
  Weight: 54.88 kg

DRUGS (2)
  1. ALBUTEROL SULFATE. [Suspect]
     Active Substance: ALBUTEROL SULFATE
     Indication: ASTHMA
     Dosage: 180 MCG, 1 TO 2 TIMES DAILY PRN
     Route: 055
     Dates: start: 20200811, end: 20200812
  2. ALBUTEROL SULFATE. [Suspect]
     Active Substance: ALBUTEROL SULFATE
     Dosage: UNKNOWN, SINGLE
     Route: 048
     Dates: start: 20200819, end: 20200819

REACTIONS (2)
  - Accidental exposure to product [Recovered/Resolved]
  - Device delivery system issue [Recovered/Resolved]

NARRATIVE: CASE EVENT DATE: 20200813
